FAERS Safety Report 17107124 (Version 1)
Quarter: 2019Q4

REPORT INFORMATION
  Report Type: Spontaneous
  Country: SE (occurrence: SE)
  Receive Date: 20191204
  Receipt Date: 20191204
  Transmission Date: 20200122
  Serious: Yes (Other)
  Sender: FDA-Public Use
  Company Number: SE-ROCHE-2482328

PATIENT
  Age: 60 Year
  Sex: Male

DRUGS (3)
  1. WARAN [Concomitant]
     Active Substance: WARFARIN SODIUM
  2. RITUXIMAB. [Suspect]
     Active Substance: RITUXIMAB
     Indication: MULTIPLE SCLEROSIS
     Route: 041
     Dates: start: 201412
  3. MODAFINIL. [Concomitant]
     Active Substance: MODAFINIL

REACTIONS (1)
  - Malignant melanoma [Unknown]

NARRATIVE: CASE EVENT DATE: 20191018
